FAERS Safety Report 8827650 (Version 1)
Quarter: 2012Q4

REPORT INFORMATION
  Report Type: 
  Country: US (occurrence: US)
  Receive Date: 20121008
  Receipt Date: 20121008
  Transmission Date: 20130627
  Serious: No
  Sender: FDA-Public Use
  Company Number: US-PFIZER INC-2012245661

PATIENT
  Age: 51 Year
  Sex: Female

DRUGS (1)
  1. NEURONTIN [Suspect]
     Indication: NEUROPATHY PERIPHERAL
     Dosage: 800 mg, 3x/day
     Route: 048
     Dates: start: 2001

REACTIONS (2)
  - Blood test abnormal [Unknown]
  - Drug ineffective [Unknown]
